FAERS Safety Report 7513150-8 (Version None)
Quarter: 2011Q2

REPORT INFORMATION
  Report Type: 
  Country: None (occurrence: None)
  Receive Date: 20110531
  Receipt Date: 20110523
  Transmission Date: 20111010
  Serious: Yes (Hospitalization, Disabling, Other)
  Sender: FDA-Public Use
  Company Number: US-MERCK-0905USA04162

PATIENT
  Age: 63 Year
  Sex: Female
  Weight: 63 kg

DRUGS (2)
  1. FOSAMAX [Suspect]
     Route: 048
     Dates: start: 20020819, end: 20070705
  2. FOSAMAX [Suspect]
     Indication: OSTEOPENIA
     Route: 048
     Dates: start: 20010901, end: 20020819

REACTIONS (22)
  - FEMUR FRACTURE [None]
  - CYSTOCELE [None]
  - NERVE ROOT COMPRESSION [None]
  - OSTEOARTHRITIS [None]
  - STRESS FRACTURE [None]
  - UTERINE LEIOMYOMA [None]
  - URETHRAL CARUNCLE [None]
  - POSTMENOPAUSAL HAEMORRHAGE [None]
  - FIBROADENOMA OF BREAST [None]
  - OSTEOPOROSIS [None]
  - DEHYDRATION [None]
  - FALL [None]
  - PNEUMONIA [None]
  - INTERVERTEBRAL DISC DEGENERATION [None]
  - BASAL CELL CARCINOMA [None]
  - ANAEMIA POSTOPERATIVE [None]
  - CHEST PAIN [None]
  - VAGINAL PROLAPSE [None]
  - URINARY TRACT INFECTION [None]
  - LACERATION [None]
  - MUSCLE SPASMS [None]
  - LIMB INJURY [None]
